FAERS Safety Report 16607648 (Version 2)
Quarter: 2019Q3

REPORT INFORMATION
  Report Type: Spontaneous
  Country: ES (occurrence: ES)
  Receive Date: 20190722
  Receipt Date: 20190805
  Transmission Date: 20191004
  Serious: Yes (Hospitalization)
  Sender: FDA-Public Use
  Company Number: ES-SA-2019SA193587

PATIENT
  Age: 71 Year
  Sex: Male

DRUGS (1)
  1. BCG FOR IMMUNOTHERAPY [Suspect]
     Active Substance: BACILLUS CALMETTE-GUERIN ANTIGEN, UNSPECIFIED SUBSTRAIN
     Indication: BLADDER CANCER
     Dosage: UNK
     Route: 065
     Dates: start: 2018

REACTIONS (9)
  - Wheezing [Recovering/Resolving]
  - Leukopenia [Recovering/Resolving]
  - Dysuria [Recovering/Resolving]
  - Disseminated tuberculosis [Recovering/Resolving]
  - Pyrexia [Recovered/Resolved]
  - Chills [Recovering/Resolving]
  - Increased bronchial secretion [Recovering/Resolving]
  - Haematuria [Recovering/Resolving]
  - Mycobacterium tuberculosis complex test positive [Recovered/Resolved]

NARRATIVE: CASE EVENT DATE: 2018
